FAERS Safety Report 17433315 (Version 1)
Quarter: 2020Q1

REPORT INFORMATION
  Report Type: Spontaneous
  Country: FR (occurrence: FR)
  Receive Date: 20200219
  Receipt Date: 20200219
  Transmission Date: 20200409
  Serious: Yes (Hospitalization)
  Sender: FDA-Public Use
  Company Number: FR-AUROBINDO-AUR-APL-2020-008479

PATIENT
  Age: 18 Year
  Sex: Female

DRUGS (2)
  1. LAMALINE (ATROPA BELLADONNA EXTRACT\CAFFEINE\PAPAVER SOMNIFERUM TINCTURE\PARACETAMOL) [Suspect]
     Active Substance: ACETAMINOPHEN\BELLADONNA LEAF\CAFFEINE\OPIUM
     Indication: ABDOMINAL PAIN
     Dosage: 16 DOSAGE FORM, 1 TOTAL
     Route: 048
     Dates: start: 20200102, end: 20200102
  2. PARACETAMOL [Suspect]
     Active Substance: ACETAMINOPHEN
     Indication: ABDOMINAL PAIN
     Dosage: 16 GRAM, 1 TOTAL
     Route: 048
     Dates: start: 20200102, end: 20200102

REACTIONS (2)
  - Prothrombin time shortened [Recovered/Resolved]
  - Intentional overdose [Recovered/Resolved]

NARRATIVE: CASE EVENT DATE: 20200102
